FAERS Safety Report 4317653-9 (Version None)
Quarter: 2004Q1

REPORT INFORMATION
  Report Type: 
  Country: None (occurrence: None)
  Receive Date: 20040315
  Receipt Date: 20040302
  Transmission Date: 20041129
  Serious: Yes (Hospitalization)
  Sender: FDA-Public Use
  Company Number: GB-GLAXOSMITHKLINE-B0325531A

PATIENT
  Age: 65 Year
  Sex: Female

DRUGS (3)
  1. ZYBAN [Suspect]
     Dosage: 150MG TWICE PER DAY
     Route: 048
     Dates: start: 20040202, end: 20040211
  2. BENDROFLUAZIDE [Concomitant]
     Indication: HYPERTENSION
     Dosage: 2.5MG PER DAY
     Route: 048
  3. FELODIPINE [Concomitant]
     Indication: HYPERTENSION
     Route: 065

REACTIONS (6)
  - ABNORMAL SENSATION IN EYE [None]
  - BLISTER [None]
  - ORAL DISCOMFORT [None]
  - RASH ERYTHEMATOUS [None]
  - STEVENS-JOHNSON SYNDROME [None]
  - TONGUE DISCOLOURATION [None]
